FAERS Safety Report 5652613-7 (Version None)
Quarter: 2008Q1

REPORT INFORMATION
  Report Type: 
  Country: None (occurrence: None)
  Receive Date: 20080131
  Receipt Date: 20070928
  Transmission Date: 20080703
  Serious: No
  Sender: FDA-Public Use
  Company Number: US200710000155

PATIENT
  Sex: Female

DRUGS (2)
  1. BYETTA [Suspect]
     Indication: MEDICATION ERROR
     Dosage: 40 UG, 2/D, SUBCUTANEOUS
     Route: 058
  2. INSULIN (INSULIN) [Concomitant]

REACTIONS (1)
  - MEDICATION ERROR [None]
